FAERS Safety Report 7348038-9 (Version None)
Quarter: 2011Q1

REPORT INFORMATION
  Report Type: 
  Country: None (occurrence: None)
  Receive Date: 20110311
  Receipt Date: 20110228
  Transmission Date: 20110831
  Serious: Yes (Disabling, Other)
  Sender: FDA-Public Use
  Company Number: PHEH2008US08054

PATIENT
  Sex: Male

DRUGS (39)
  1. CASODEX [Concomitant]
     Dosage: UNK
     Dates: end: 20060101
  2. URISED [Concomitant]
     Dosage: UNK
  3. SEPTRA [Concomitant]
     Dosage: UNK
  4. METOPROLOL [Concomitant]
  5. HYDROCODONE [Concomitant]
  6. PEPCID [Concomitant]
  7. FLONASE [Concomitant]
  8. MARINOL [Concomitant]
  9. ZANTAC [Concomitant]
  10. GABAPENTIN [Concomitant]
  11. ZOMETA [Suspect]
     Indication: PROPHYLAXIS
     Dosage: 4 MG, QMO
     Route: 042
     Dates: start: 20030423, end: 20070601
  12. NIZORAL [Concomitant]
     Dosage: UNK
  13. POTASSIUM CITRATE [Concomitant]
     Dosage: ONE TABLET B.I.D.
  14. KETOCONAZOLE [Concomitant]
     Dosage: UNK
     Dates: start: 20061001, end: 20070101
  15. EPOGEN [Concomitant]
  16. GLIPIZIDE [Concomitant]
     Indication: TYPE 2 DIABETES MELLITUS
  17. PRILOSEC [Concomitant]
  18. MS CONTIN [Concomitant]
  19. TRAZODONE HCL [Concomitant]
  20. LUPRON [Concomitant]
  21. LORAZEPAM [Concomitant]
  22. VICODIN [Concomitant]
  23. OXYCODONE HCL AND ACETAMINOPHEN [Concomitant]
     Dosage: 5-325MG
  24. SIMVASTATIN [Concomitant]
  25. IBUPROFEN [Concomitant]
  26. PREMARIN [Concomitant]
     Dosage: UNK
     Dates: start: 20070101
  27. BEXTRA [Concomitant]
  28. TAXOTERE [Concomitant]
     Indication: PROSTATE CANCER
  29. CITALOPRAM [Concomitant]
  30. METFORMIN [Concomitant]
     Indication: TYPE 2 DIABETES MELLITUS
  31. CLONAZEPAM [Concomitant]
  32. PERCOCET [Concomitant]
  33. ASPIRIN [Concomitant]
  34. DURAGESIC-50 [Concomitant]
     Indication: BONE PAIN
  35. FLOMAX [Concomitant]
     Dosage: 0.4 MG, QD
  36. HYDROXYZINE [Concomitant]
  37. ZOLADEX [Concomitant]
     Indication: PROSTATE CANCER
  38. TRIAZOLAM [Concomitant]
     Dosage: 0.25 MG
  39. PROCRIT                            /00909301/ [Concomitant]

REACTIONS (57)
  - INFECTION [None]
  - OSTEONECROSIS OF JAW [None]
  - ANXIETY [None]
  - INJURY [None]
  - TOOTH FRACTURE [None]
  - PERIODONTITIS [None]
  - SWELLING [None]
  - PROSTATIC SPECIFIC ANTIGEN INCREASED [None]
  - INSOMNIA [None]
  - PELVIC PAIN [None]
  - GYNAECOMASTIA [None]
  - BLOOD TESTOSTERONE DECREASED [None]
  - MENISCUS LESION [None]
  - CALCULUS BLADDER [None]
  - INTESTINAL FUNCTIONAL DISORDER [None]
  - CONSTIPATION [None]
  - PAIN [None]
  - PAIN IN JAW [None]
  - BONE DENSITY DECREASED [None]
  - PROSTATE CANCER METASTATIC [None]
  - LUNG NEOPLASM [None]
  - NECK PAIN [None]
  - BONE PAIN [None]
  - HOT FLUSH [None]
  - ANHEDONIA [None]
  - FATIGUE [None]
  - HAEMATURIA [None]
  - GINGIVAL EROSION [None]
  - GINGIVAL BLEEDING [None]
  - ANAEMIA [None]
  - BILIARY CYST [None]
  - DENTAL DISCOMFORT [None]
  - BREAST TENDERNESS [None]
  - OESOPHAGEAL DISORDER [None]
  - ABDOMINAL PAIN [None]
  - MENTAL DISORDER [None]
  - GINGIVITIS [None]
  - BONE DISORDER [None]
  - OPEN WOUND [None]
  - CONCOMITANT DISEASE PROGRESSION [None]
  - NAUSEA [None]
  - BLADDER HYPERTROPHY [None]
  - COLITIS [None]
  - ADRENAL NEOPLASM [None]
  - BACK PAIN [None]
  - DIVERTICULUM [None]
  - NEPHROLITHIASIS [None]
  - BLOOD URINE PRESENT [None]
  - DYSURIA [None]
  - NOCTURIA [None]
  - GINGIVAL OEDEMA [None]
  - DYSPNOEA [None]
  - NIGHT SWEATS [None]
  - CHILLS [None]
  - GAIT DISTURBANCE [None]
  - SEBORRHOEIC KERATOSIS [None]
  - DYSPHAGIA [None]
